FAERS Safety Report 9285650 (Version 2)
Quarter: 2013Q4

REPORT INFORMATION
  Report Type: Spontaneous
  Country: US (occurrence: US)
  Receive Date: 20130513
  Receipt Date: 20131025
  Transmission Date: 20140711
  Serious: Yes (Death, Hospitalization)
  Sender: FDA-Public Use
  Company Number: US-B.I. PHARMACEUTICALS,INC./RIDGEFIELD-2013-BI-13259BP

PATIENT
  Age: 86 Year
  Sex: Male
  Weight: 65.8 kg

DRUGS (11)
  1. PRADAXA [Suspect]
     Indication: ANTICOAGULANT THERAPY
     Dosage: 300 MG
     Route: 048
     Dates: start: 20110504, end: 20120101
  2. PRADAXA [Suspect]
     Indication: ATRIAL FIBRILLATION
  3. FUROSEMIDE [Concomitant]
     Dosage: 80 MG
     Route: 048
  4. COREG [Concomitant]
     Dosage: 25 MG
     Route: 048
  5. SPIRONOLACTONE [Concomitant]
     Dosage: 25 MG
     Route: 048
  6. ALPRAZOLAM [Concomitant]
     Route: 048
  7. PROTONIX [Concomitant]
     Dosage: 40 MG
     Route: 048
  8. ASPIRIN [Concomitant]
     Dosage: 81 MG
     Route: 048
  9. DIGOXIN [Concomitant]
     Dosage: 0.125 MG
     Route: 048
  10. SIMVASTATIN [Concomitant]
  11. MULTIVITAMIN [Concomitant]

REACTIONS (6)
  - Ischaemic stroke [Fatal]
  - Cerebrovascular accident [Fatal]
  - Upper gastrointestinal haemorrhage [Recovered/Resolved]
  - Coagulopathy [Unknown]
  - Haemorrhagic anaemia [Unknown]
  - Thrombocytopenia [Unknown]
